FAERS Safety Report 7574309-7 (Version None)
Quarter: 2011Q2

REPORT INFORMATION
  Report Type: 
  Country: None (occurrence: None)
  Receive Date: 20110627
  Receipt Date: 20110508
  Transmission Date: 20111010
  Serious: No
  Sender: FDA-Public Use
  Company Number: US-BAYER-2011-041431

PATIENT
  Sex: Female

DRUGS (2)
  1. NYQUIL [Concomitant]
     Route: 048
  2. ALEVE (CAPLET) [Suspect]
     Dosage: 6 DF, UNK
     Route: 048

REACTIONS (1)
  - PAIN [None]
